FAERS Safety Report 21811613 (Version 1)
Quarter: 2022Q4

REPORT INFORMATION
  Report Type: Spontaneous
  Country: US (occurrence: None)
  Receive Date: 20221230
  Receipt Date: 20221230
  Transmission Date: 20230113
  Serious: Yes (Hospitalization)
  Sender: FDA-Public Use
  Company Number: None

PATIENT
  Sex: Male

DRUGS (1)
  1. VOTRIENT [Suspect]
     Active Substance: PAZOPANIB HYDROCHLORIDE
     Indication: Connective tissue neoplasm
     Dosage: FREQUENCY : AS DIRECTED;?TAKE 3 TABLETS (600 MG TOTAL) BY MOUTH DAILY. TAKE ON AN EMPTY STOMACH, AT
     Route: 048
     Dates: start: 20220418

REACTIONS (2)
  - Therapy interrupted [None]
  - Surgery [None]
